FAERS Safety Report 25978928 (Version 1)
Quarter: 2025Q4

REPORT INFORMATION
  Report Type: Spontaneous
  Country: US (occurrence: US)
  Receive Date: 20251030
  Receipt Date: 20251030
  Transmission Date: 20260117
  Serious: Yes (Hospitalization)
  Sender: MYLAN
  Company Number: US-MYLANLABS-2025M1091530

PATIENT
  Age: 5 Decade
  Sex: Female

DRUGS (18)
  1. DEXAMETHASONE [Suspect]
     Active Substance: DEXAMETHASONE
     Indication: Hodgkin^s disease
     Dosage: UNK
  2. ACYCLOVIR [Suspect]
     Active Substance: ACYCLOVIR
     Indication: Genital herpes
     Dosage: 400 MILLIGRAM, BID
  3. ACYCLOVIR [Suspect]
     Active Substance: ACYCLOVIR
     Indication: Herpes simplex
  4. ACYCLOVIR [Suspect]
     Active Substance: ACYCLOVIR
     Indication: Genital herpes
     Dosage: RECEIVED 5-10 MG/KG, QD
  5. ACYCLOVIR [Suspect]
     Active Substance: ACYCLOVIR
     Indication: Herpes simplex
  6. DOXORUBICIN [Suspect]
     Active Substance: DOXORUBICIN
     Indication: Hodgkin^s disease
     Dosage: UNK
  7. CYCLOPHOSPHAMIDE [Suspect]
     Active Substance: CYCLOPHOSPHAMIDE
     Indication: Hodgkin^s disease
     Dosage: UNK
  8. VINBLASTINE [Suspect]
     Active Substance: VINBLASTINE
     Indication: Hodgkin^s disease
     Dosage: UNK
  9. DACARBAZINE [Suspect]
     Active Substance: DACARBAZINE
     Indication: Hodgkin^s disease
     Dosage: UNK
  10. VALGANCICLOVIR [Suspect]
     Active Substance: VALGANCICLOVIR
     Indication: Genital herpes
     Dosage: RECEIVED VALGANCICLOVIR 450-900 MG , BID
  11. VALGANCICLOVIR [Suspect]
     Active Substance: VALGANCICLOVIR
     Indication: Cytomegalovirus infection
  12. VALGANCICLOVIR [Suspect]
     Active Substance: VALGANCICLOVIR
     Indication: Herpes simplex
  13. VALGANCICLOVIR [Suspect]
     Active Substance: VALGANCICLOVIR
     Indication: Ulcer
  14. CIDOFOVIR [Concomitant]
     Active Substance: CIDOFOVIR
     Indication: Genital herpes
     Dosage: UNK
  15. CIDOFOVIR [Concomitant]
     Active Substance: CIDOFOVIR
     Indication: Herpes simplex
  16. DOLUTEGRAVIR [Concomitant]
     Active Substance: DOLUTEGRAVIR
     Indication: HIV infection
     Dosage: UNK
  17. TENOFOVIR ALAFENAMIDE [Concomitant]
     Active Substance: TENOFOVIR ALAFENAMIDE
     Indication: HIV infection
     Dosage: UNK
  18. EMTRICITABINE [Concomitant]
     Active Substance: EMTRICITABINE
     Indication: HIV infection
     Dosage: UNK

REACTIONS (10)
  - Enterococcal bacteraemia [Unknown]
  - Staphylococcal infection [Unknown]
  - Bacteraemia [Unknown]
  - Vomiting [Unknown]
  - Diarrhoea [Unknown]
  - Herpes simplex anorectal [Recovering/Resolving]
  - Cytomegalovirus infection [Recovering/Resolving]
  - Genital ulceration [Recovering/Resolving]
  - Feeding intolerance [Unknown]
  - Drug ineffective [Unknown]
